FAERS Safety Report 6704059-8 (Version None)
Quarter: 2010Q2

REPORT INFORMATION
  Report Type: 
  Country: None (occurrence: None)
  Receive Date: 20100430
  Receipt Date: 20100419
  Transmission Date: 20101027
  Serious: Yes (Other)
  Sender: FDA-Public Use
  Company Number: IL-JNJFOC-20100405567

PATIENT
  Sex: Female

DRUGS (2)
  1. STELARA [Suspect]
     Indication: DRUG USE FOR UNKNOWN INDICATION
     Route: 058
  2. STELARA [Suspect]
     Dosage: 5TH DOSE
     Route: 058

REACTIONS (1)
  - DEAFNESS [None]
